FAERS Safety Report 8385298 (Version 2)
Quarter: 2012Q4

REPORT INFORMATION
  Report Type: 
  Country: US (occurrence: US)
  Receive Date: 20120202
  Receipt Date: 20121015
  Transmission Date: 20130627
  Serious: Yes (Death)
  Sender: FDA-Public Use
  Company Number: US-ROCHE-1035115

PATIENT
  Sex: Male

DRUGS (1)
  1. AVASTIN [Suspect]
     Indication: GLIOBLASTOMA MULTIFORME
     Route: 065

REACTIONS (6)
  - Death [Fatal]
  - Asthenia [Unknown]
  - Epigastric discomfort [Unknown]
  - Dizziness [Unknown]
  - Fatigue [Unknown]
  - Productive cough [Unknown]
